FAERS Safety Report 7067458-3 (Version None)
Quarter: 2010Q4

REPORT INFORMATION
  Report Type: 
  Country: None (occurrence: None)
  Receive Date: 20101026
  Receipt Date: 20101026
  Transmission Date: 20110411
  Serious: Yes (Death)
  Sender: FDA-Public Use
  Company Number: None

PATIENT
  Age: 68 Year
  Sex: Female
  Weight: 74.2 kg

DRUGS (2)
  1. METFORMIN HCL [Suspect]
     Indication: DIABETES MELLITUS
     Dosage: METFORMIN TWICE DAILY ORAL
     Route: 048
  2. VODKA [Suspect]

REACTIONS (11)
  - ABDOMINAL PAIN [None]
  - ALCOHOL USE [None]
  - BLOOD POTASSIUM INCREASED [None]
  - HAEMATEMESIS [None]
  - HAEMODIALYSIS [None]
  - HAEMORRHAGE [None]
  - HYPOTENSION [None]
  - LACTIC ACIDOSIS [None]
  - NAUSEA [None]
  - RENAL IMPAIRMENT [None]
  - VOMITING [None]
